FAERS Safety Report 17940033 (Version 2)
Quarter: 2020Q3

REPORT INFORMATION
  Report Type: Spontaneous
  Country: BR (occurrence: BR)
  Receive Date: 20200625
  Receipt Date: 20200724
  Transmission Date: 20201103
  Serious: Yes (Other)
  Sender: FDA-Public Use
  Company Number: BR-SA-2020SA133873

PATIENT

DRUGS (3)
  1. CLOPIDOGREL BISULFATE. [Suspect]
     Active Substance: CLOPIDOGREL BISULFATE
     Indication: ANTICOAGULANT THERAPY
     Dosage: 0.5 DF
     Route: 065
  2. NOVALGINA [Concomitant]
     Active Substance: METAMIZOLE SODIUM
     Indication: BACK PAIN
  3. PREGABALIN. [Suspect]
     Active Substance: PREGABALIN
     Dosage: UNK UNK, HS
     Route: 065

REACTIONS (19)
  - Back pain [Unknown]
  - Condition aggravated [Recovering/Resolving]
  - Blood pressure abnormal [Unknown]
  - Malaise [Unknown]
  - Eye swelling [Unknown]
  - Chest pain [Unknown]
  - Palpitations [Recovering/Resolving]
  - Throat tightness [Recovered/Resolved]
  - Middle insomnia [Unknown]
  - Chest injury [Unknown]
  - Dizziness [Unknown]
  - Arrhythmia [Unknown]
  - Fall [Unknown]
  - Anxiety [Unknown]
  - Eye pain [Unknown]
  - Headache [Recovering/Resolving]
  - Drug ineffective [Recovering/Resolving]
  - Intentional product use issue [Unknown]
  - Pain [Unknown]
